FAERS Safety Report 4346050-5 (Version None)
Quarter: 2004Q1

REPORT INFORMATION
  Report Type: 
  Country: None (occurrence: None)
  Receive Date: 20040325
  Receipt Date: 20040112
  Transmission Date: 20041129
  Serious: No
  Sender: FDA-Public Use
  Company Number: USA040156272

PATIENT
  Age: 80 Year
  Sex: Female

DRUGS (9)
  1. FORTEO [Suspect]
     Dates: start: 20021201
  2. CELEBREX [Concomitant]
  3. ALLEGRA [Concomitant]
  4. VASOTEC [Concomitant]
  5. PREMARIN [Concomitant]
  6. AZMACORT [Concomitant]
  7. PREDNISONE [Concomitant]
  8. VITAMIN C [Concomitant]
  9. CALCIUM [Concomitant]

REACTIONS (2)
  - BODY HEIGHT DECREASED [None]
  - TOOTH INJURY [None]
